FAERS Safety Report 24344841 (Version 1)
Quarter: 2024Q3

REPORT INFORMATION
  Report Type: Spontaneous
  Country: US (occurrence: US)
  Receive Date: 20240920
  Receipt Date: 20240920
  Transmission Date: 20241017
  Serious: No
  Sender: PFIZER
  Company Number: US-PFIZER INC-202400060602

PATIENT
  Age: 59 Year
  Sex: Female

DRUGS (4)
  1. CIBINQO [Suspect]
     Active Substance: ABROCITINIB
     Indication: Dermatitis atopic
     Dosage: 100MG ONCE DAILY
     Route: 048
  2. CIBINQO [Suspect]
     Active Substance: ABROCITINIB
     Indication: Rash erythematous
  3. CIBINQO [Suspect]
     Active Substance: ABROCITINIB
     Indication: Eczema
  4. CIBINQO [Suspect]
     Active Substance: ABROCITINIB
     Indication: Dermatitis contact

REACTIONS (1)
  - Liver function test increased [Unknown]
